FAERS Safety Report 4792854-4 (Version None)
Quarter: 2005Q4

REPORT INFORMATION
  Report Type: 
  Country: None (occurrence: None)
  Receive Date: 20051010
  Receipt Date: 20050930
  Transmission Date: 20060501
  Serious: Yes (Other)
  Sender: FDA-Public Use
  Company Number: 200517044US

PATIENT
  Sex: Female

DRUGS (2)
  1. LANTUS [Suspect]
     Dosage: DOSE: UNK
  2. HUMULIN R [Concomitant]
     Dosage: DOSE: UNK

REACTIONS (5)
  - ABASIA [None]
  - BLOOD GLUCOSE FLUCTUATION [None]
  - DISTURBANCE IN ATTENTION [None]
  - DIZZINESS [None]
  - IMPAIRED DRIVING ABILITY [None]
